FAERS Safety Report 9820968 (Version 2)
Quarter: 2014Q1

REPORT INFORMATION
  Report Type: Spontaneous
  Country: US (occurrence: US)
  Receive Date: 20140116
  Receipt Date: 20140116
  Transmission Date: 20141002
  Serious: Yes (Death, Other)
  Sender: FDA-Public Use
  Company Number: US-TAKEDA-TPA2012A10217

PATIENT
  Sex: 0

DRUGS (8)
  1. DEXILANT [Suspect]
     Indication: REFLUX LARYNGITIS
     Route: 048
     Dates: start: 20120830, end: 20121017
  2. DEXILANT [Suspect]
  3. LISINOPRIL [Concomitant]
  4. UNKNOWN MEDICATIONS [Concomitant]
  5. PLAVIX [Concomitant]
     Indication: CORONARY ARTERIAL STENT INSERTION
     Route: 048
     Dates: start: 20110619
  6. FLOMAX                             /01280302/ [Concomitant]
  7. METOPROLOL [Concomitant]
  8. SINGULAIR [Concomitant]

REACTIONS (13)
  - Death [Fatal]
  - Bone cancer [Unknown]
  - Metastases to liver [Unknown]
  - Metastases to gallbladder [Unknown]
  - Metastases to lung [Unknown]
  - Metastases to bone [Unknown]
  - Metastatic squamous cell carcinoma [Unknown]
  - Jaw fracture [Unknown]
  - Oral disorder [Unknown]
  - Mouth haemorrhage [Unknown]
  - Off label use [Unknown]
  - Paraesthesia [Not Recovered/Not Resolved]
  - Inflammation [Not Recovered/Not Resolved]
